FAERS Safety Report 8658586 (Version 2)
Quarter: 2013Q3

REPORT INFORMATION
  Report Type: Report from Study
  Country: DE (occurrence: DE)
  Receive Date: 20120710
  Receipt Date: 20130807
  Transmission Date: 20140515
  Serious: Yes (Other)
  Sender: FDA-Public Use
  Company Number: PHHY2012DE038742

PATIENT
  Sex: Female

DRUGS (6)
  1. FTY 720 [Suspect]
     Indication: MULTIPLE SCLEROSIS
     Dosage: 0.5 MG, QD
     Route: 048
     Dates: start: 20110503
  2. FTY 720 [Suspect]
     Dosage: 0.5 MG, QD
     Route: 048
     Dates: start: 20111026
  3. TOLPERISONE [Concomitant]
     Indication: MUSCLE SPASTICITY
     Dosage: 1 DF, TID
     Route: 048
     Dates: start: 20101115
  4. CITALOPRAM [Concomitant]
     Indication: DEPRESSED MOOD
     Dosage: 1 DF, QD
     Route: 048
     Dates: start: 20110531
  5. MAXIM                              /01257001/ [Concomitant]
     Indication: CONTRACEPTION
     Dosage: 1 DF, QD
     Route: 048
     Dates: start: 20100315
  6. LYRICA [Concomitant]
     Dosage: 150 MG, QD
     Dates: start: 20130314

REACTIONS (3)
  - Retinal pigment epithelial tear [Unknown]
  - Uveitis [Recovered/Resolved]
  - Eye inflammation [Unknown]
